FAERS Safety Report 4320068-0 (Version None)
Quarter: 2004Q1

REPORT INFORMATION
  Report Type: 
  Country: None (occurrence: None)
  Receive Date: 20040315
  Receipt Date: 20040120
  Transmission Date: 20041129
  Serious: No
  Sender: FDA-Public Use
  Company Number: 2004195299US

PATIENT
  Age: 59 Year
  Sex: Male

DRUGS (5)
  1. BEXTRA [Suspect]
     Indication: ROTATOR CUFF REPAIR
     Dosage: 20 MG
     Dates: start: 20040114
  2. LIPITOR [Concomitant]
  3. PREVACID [Concomitant]
  4. ASPIRIN [Concomitant]
  5. ZETIA [Concomitant]

REACTIONS (2)
  - GINGIVAL BLEEDING [None]
  - SKIN ODOUR ABNORMAL [None]
